FAERS Safety Report 7978652-9 (Version None)
Quarter: 2011Q4

REPORT INFORMATION
  Report Type: 
  Country: None (occurrence: None)
  Receive Date: 20111214
  Receipt Date: 20111207
  Transmission Date: 20120403
  Serious: Yes (Hospitalization)
  Sender: FDA-Public Use
  Company Number: US-B.I. PHARMACEUTICALS,INC./RIDGEFIELD-2011-BP-27626BP

PATIENT
  Sex: Female

DRUGS (9)
  1. CELEBREX [Concomitant]
     Indication: ARTHRITIS
  2. LISINOPRIL [Concomitant]
     Indication: HYPERTENSION
  3. COREG [Concomitant]
     Indication: HYPERTENSION
  4. SOTALOL HCL [Concomitant]
     Indication: HYPERTENSION
  5. PRADAXA [Suspect]
     Indication: ATRIAL FIBRILLATION
     Dosage: 300 MG
     Route: 048
     Dates: start: 20110601, end: 20111001
  6. LIPITOR [Concomitant]
     Indication: BLOOD CHOLESTEROL INCREASED
  7. REGLAN [Concomitant]
     Indication: NAUSEA
  8. SYNTHROID [Concomitant]
     Indication: HYPOTHYROIDISM
  9. NEXIUM [Concomitant]
     Indication: GASTROOESOPHAGEAL REFLUX DISEASE

REACTIONS (1)
  - ABDOMINAL PAIN [None]
